FAERS Safety Report 23240668 (Version 1)
Quarter: 2023Q4

REPORT INFORMATION
  Report Type: Spontaneous
  Country: NO (occurrence: NO)
  Receive Date: 20231129
  Receipt Date: 20231129
  Transmission Date: 20240110
  Serious: Yes (Hospitalization, Other)
  Sender: FDA-Public Use
  Company Number: NO-AMGEN-NORSP2023208310

PATIENT
  Age: 75 Year
  Sex: Female

DRUGS (14)
  1. PROLIA [Suspect]
     Active Substance: DENOSUMAB
     Indication: Osteoporosis postmenopausal
     Dosage: 60 MILLIGRAM, Q6MO
     Route: 058
  2. LIPITOR [Concomitant]
     Active Substance: ATORVASTATIN CALCIUM
     Dosage: 20 MILLIGRAM, QD
     Route: 065
  3. NEXIUM [Concomitant]
     Active Substance: ESOMEPRAZOLE MAGNESIUM
     Dosage: 40 MILLIGRAM, QD
     Route: 065
  4. CALCIUM CARBONATE [Concomitant]
     Active Substance: CALCIUM CARBONATE
     Dosage: 1000 MILLIGRAM
     Route: 065
  5. CHOLECALCIFEROL [Concomitant]
     Active Substance: CHOLECALCIFEROL
     Dosage: 800 MILLIGRAM, QD
     Route: 065
  6. ALBUTEROL [Concomitant]
     Active Substance: ALBUTEROL
     Dosage: 0.1 MILLIGRAM (1 INHALATION WHEN NEEDED, MAXIMUM 4 INHALATIONS DAILY)
     Route: 065
  7. ZYRTEC [Concomitant]
     Active Substance: CETIRIZINE HYDROCHLORIDE
     Dosage: 10 MILLIGRAM, QD
     Route: 065
  8. ACETAMINOPHEN [Concomitant]
     Active Substance: ACETAMINOPHEN
     Dosage: 500 MILLIGRAM (4D)
     Route: 048
     Dates: start: 20231030, end: 20231102
  9. OZEMPIC [Concomitant]
     Active Substance: SEMAGLUTIDE
     Indication: Medical diet
     Dosage: 1 MILLIGRAM (WK)
     Route: 058
     Dates: start: 20211101, end: 20231030
  10. ALVESCO [Concomitant]
     Active Substance: CICLESONIDE
     Dosage: 160 MICROGRAM (UG)
     Route: 065
  11. ALVESCO [Concomitant]
     Active Substance: CICLESONIDE
     Dosage: 160 MICROGRAM (UG)
     Route: 065
  12. LATANOPROST [Concomitant]
     Active Substance: LATANOPROST
     Dosage: 50 UG/ML (MICROGRAM PER MILLILITRE)
     Route: 065
  13. LOMUDAL [Concomitant]
     Dosage: 40 MILLIGRAM PER MILLILITRE, QD
  14. AZOPT [Concomitant]
     Active Substance: BRINZOLAMIDE
     Dosage: 10 MILLIGRAM PER MILLILITRE (12 H)
     Route: 065

REACTIONS (2)
  - Femoral neck fracture [Recovering/Resolving]
  - Drug ineffective [Recovering/Resolving]

NARRATIVE: CASE EVENT DATE: 20231030
